FAERS Safety Report 8484116-9 (Version None)
Quarter: 2012Q2

REPORT INFORMATION
  Report Type: 
  Country: None (occurrence: None)
  Receive Date: 20120625
  Receipt Date: 20120612
  Transmission Date: 20120825
  Serious: Yes (Death, Hospitalization)
  Sender: FDA-Public Use
  Company Number: IMP_05921_2012

PATIENT
  Age: 69 Year
  Sex: Male

DRUGS (9)
  1. METFORMIN HCL [Suspect]
     Indication: PRODUCT USED FOR UNKNOWN INDICATION
     Dosage: DF, FREQUENCY UNKNOWN
  2. OMEPRAZOLE [Concomitant]
  3. GABAPENTIN [Concomitant]
  4. LISINOPRIL [Concomitant]
  5. METOPROLOL [Concomitant]
  6. GLIPIZIDE [Concomitant]
  7. ROSUVASTATIN [Concomitant]
  8. SERTRALINE HYDROCHLORIDE [Concomitant]
  9. CLOPIDOGREL [Concomitant]

REACTIONS (21)
  - GASTROINTESTINAL SOUNDS ABNORMAL [None]
  - ABDOMINAL RIGIDITY [None]
  - BLOOD GLUCOSE INCREASED [None]
  - HYPERHIDROSIS [None]
  - RESPIRATORY RATE INCREASED [None]
  - LUNG INFILTRATION [None]
  - HYPERKALAEMIA [None]
  - NAUSEA [None]
  - FAECALOMA [None]
  - WHITE BLOOD CELL COUNT INCREASED [None]
  - LACTIC ACIDOSIS [None]
  - SEPSIS [None]
  - GENERAL PHYSICAL HEALTH DETERIORATION [None]
  - ABDOMINAL PAIN [None]
  - VOMITING [None]
  - BLOOD PRESSURE DECREASED [None]
  - ABDOMINAL TENDERNESS [None]
  - OCCULT BLOOD POSITIVE [None]
  - BLOOD CREATININE INCREASED [None]
  - BLOOD UREA INCREASED [None]
  - ACIDOSIS [None]
